FAERS Safety Report 16675377 (Version 1)
Quarter: 2019Q3

REPORT INFORMATION
  Report Type: Spontaneous
  Country: CA (occurrence: CA)
  Receive Date: 20190806
  Receipt Date: 20190806
  Transmission Date: 20191004
  Serious: Yes (Other)
  Sender: FDA-Public Use
  Company Number: CA-TEVA-2019-CA-1087445

PATIENT
  Age: 46 Year
  Sex: Male

DRUGS (3)
  1. OXYNEO [Suspect]
     Active Substance: OXYCODONE
     Indication: PRODUCT USED FOR UNKNOWN INDICATION
     Dosage: 640 MILLIGRAM DAILY;
     Route: 048
  2. HYDROMORPHONE HYDROCHLORIDE. [Suspect]
     Active Substance: HYDROMORPHONE HYDROCHLORIDE
     Indication: PRODUCT USED FOR UNKNOWN INDICATION
     Route: 065
  3. LYRICA [Concomitant]
     Active Substance: PREGABALIN

REACTIONS (5)
  - Drug hypersensitivity [Recovering/Resolving]
  - Pruritus [Recovering/Resolving]
  - Headache [Recovering/Resolving]
  - Therapeutic product effect decreased [Recovering/Resolving]
  - Nausea [Recovering/Resolving]
